FAERS Safety Report 23470268 (Version 1)
Quarter: 2024Q1

REPORT INFORMATION
  Report Type: Spontaneous
  Country: US (occurrence: None)
  Receive Date: 20240202
  Receipt Date: 20240202
  Transmission Date: 20240410
  Serious: Yes (Other)
  Sender: FDA-Public Use
  Company Number: None

PATIENT
  Age: 69 Year
  Sex: Male

DRUGS (4)
  1. AMBRISENTAN [Suspect]
     Active Substance: AMBRISENTAN
     Indication: Pulmonary arterial hypertension
     Route: 048
     Dates: start: 20190910
  2. CA CITRATE TAB PLUS [Concomitant]
  3. TADALAFIL  MG TAB [Concomitant]
  4. VITAMIN B12 TAB 100MCG [Concomitant]

REACTIONS (1)
  - Cataract operation [None]

NARRATIVE: CASE EVENT DATE: 20240201
